FAERS Safety Report 8235697-1 (Version None)
Quarter: 2012Q1

REPORT INFORMATION
  Report Type: 
  Country: None (occurrence: None)
  Receive Date: 20120326
  Receipt Date: 20120319
  Transmission Date: 20120608
  Serious: Yes (Hospitalization, Other)
  Sender: FDA-Public Use
  Company Number: US-PFIZER INC-2011228508

PATIENT
  Age: 71 Year
  Sex: Female

DRUGS (6)
  1. LYRICA [Suspect]
     Indication: NEUROPATHY PERIPHERAL
     Dosage: 25 MG, 3X/DAY
     Route: 048
     Dates: start: 20120101, end: 20120101
  2. GABAPENTIN [Suspect]
     Indication: NEUROPATHY PERIPHERAL
     Dosage: 100 MG, 1X/DAY
     Route: 048
     Dates: start: 20110901, end: 20120101
  3. KLONOPIN [Concomitant]
     Dosage: UNK
  4. REMERON [Concomitant]
     Dosage: UNK
  5. NEURONTIN [Suspect]
     Indication: NEUROPATHY PERIPHERAL
     Dosage: 100 MG, 3X/DAY
     Route: 048
     Dates: start: 19990101, end: 20010101
  6. LEVOXYL [Concomitant]
     Dosage: UNK

REACTIONS (14)
  - VISION BLURRED [None]
  - BLOOD UREA INCREASED [None]
  - MALAISE [None]
  - PANIC ATTACK [None]
  - GASTROINTESTINAL PAIN [None]
  - PAIN [None]
  - SUICIDAL IDEATION [None]
  - ANXIETY [None]
  - FEELING ABNORMAL [None]
  - FOOD ALLERGY [None]
  - DEPRESSION [None]
  - PRURITUS GENERALISED [None]
  - DIZZINESS [None]
  - BLOOD SODIUM DECREASED [None]
